FAERS Safety Report 10912786 (Version 1)
Quarter: 2015Q1

REPORT INFORMATION
  Report Type: Spontaneous
  Country: US (occurrence: None)
  Receive Date: 20150310
  Receipt Date: 20150310
  Transmission Date: 20150721
  Serious: Yes (Other)
  Sender: FDA-Public Use
  Company Number: None

PATIENT
  Age: 80 Year
  Sex: Female
  Weight: 56.25 kg

DRUGS (19)
  1. LEVOFLOXACIN. [Suspect]
     Active Substance: LEVOFLOXACIN
     Indication: PYREXIA
     Dosage: BY MOUTH 7 TABLETS
     Dates: start: 20141228, end: 20150104
  2. LEVOFLOXACIN. [Suspect]
     Active Substance: LEVOFLOXACIN
     Indication: OROPHARYNGEAL PAIN
     Dosage: BY MOUTH 7 TABLETS
     Dates: start: 20141228, end: 20150104
  3. VITAMIN B12 [Concomitant]
     Active Substance: CYANOCOBALAMIN
  4. VITAMINS [Concomitant]
     Active Substance: VITAMINS
  5. POTASSIUM [Concomitant]
     Active Substance: POTASSIUM
  6. VYTORIN [Concomitant]
     Active Substance: EZETIMIBE\SIMVASTATIN
  7. HCTZ [Concomitant]
     Active Substance: HYDROCHLOROTHIAZIDE
  8. MELATONIN [Concomitant]
     Active Substance: MELATONIN
  9. VITAMIN C [Concomitant]
     Active Substance: ASCORBIC ACID
  10. LEVOTHYROX [Concomitant]
     Active Substance: LEVOTHYROXINE
  11. IRON [Concomitant]
     Active Substance: IRON
  12. FOLIC ACID. [Concomitant]
     Active Substance: FOLIC ACID
  13. TYLENOL [Concomitant]
     Active Substance: ACETAMINOPHEN
  14. ASPERCREME NOS [Concomitant]
     Active Substance: MENTHOL\TROLAMINE SALICYLATE
  15. LEVOFLOXACIN. [Suspect]
     Active Substance: LEVOFLOXACIN
     Indication: SINUS CONGESTION
     Dosage: BY MOUTH 7 TABLETS
     Dates: start: 20141228, end: 20150104
  16. ENALAPRIL [Concomitant]
     Active Substance: ENALAPRIL
  17. BAYER ASPIRIN [Concomitant]
     Active Substance: ASPIRIN
  18. BENADRYL [Concomitant]
     Active Substance: DIPHENHYDRAMINE HYDROCHLORIDE
  19. CALCIUM/D3 [Concomitant]
     Active Substance: CALCIUM\CHOLECALCIFEROL

REACTIONS (3)
  - Pain in extremity [None]
  - Dizziness [None]
  - Musculoskeletal pain [None]

NARRATIVE: CASE EVENT DATE: 20141230
